FAERS Safety Report 7899046-0 (Version None)
Quarter: 2011Q4

REPORT INFORMATION
  Report Type: 
  Country: None (occurrence: None)
  Receive Date: 20111107
  Receipt Date: 20111013
  Transmission Date: 20120403
  Serious: Yes (Other)
  Sender: FDA-Public Use
  Company Number: US-ROCHE-674965

PATIENT
  Sex: Female
  Weight: 74.8 kg

DRUGS (6)
  1. HYTONE [Concomitant]
  2. ACCUTANE [Suspect]
     Route: 065
  3. ACCUTANE [Suspect]
     Indication: ACNE
     Dosage: DISCONTINUED FOR 5 DAYS
     Route: 065
     Dates: start: 20021127, end: 20021201
  4. AMNESTEEM [Suspect]
     Indication: ACNE
     Route: 065
     Dates: start: 20030128, end: 20030701
  5. LOCOID [Concomitant]
  6. CLARAVIS [Suspect]
     Indication: ACNE
     Route: 065
     Dates: start: 20030829, end: 20040601

REACTIONS (5)
  - LIP DRY [None]
  - INFLAMMATORY BOWEL DISEASE [None]
  - COLITIS ULCERATIVE [None]
  - HAEMORRHOIDS [None]
  - HEADACHE [None]
